FAERS Safety Report 8125374-X (Version None)
Quarter: 2012Q1

REPORT INFORMATION
  Report Type: 
  Country: None (occurrence: None)
  Receive Date: 20120209
  Receipt Date: 20120201
  Transmission Date: 20120608
  Serious: Yes (Hospitalization)
  Sender: FDA-Public Use
  Company Number: FR-GLAXOSMITHKLINE-B0778619A

PATIENT
  Sex: Male

DRUGS (2)
  1. YELLOW FEVER VACCINE [Concomitant]
     Indication: PROPHYLAXIS
     Dates: start: 20110101
  2. MALARONE [Suspect]
     Indication: MALARIA PROPHYLAXIS
     Dosage: 1TAB PER DAY
     Route: 048
     Dates: start: 20111212, end: 20111230

REACTIONS (2)
  - PYREXIA [None]
  - DERMATITIS EXFOLIATIVE [None]
